FAERS Safety Report 8996328 (Version 2)
Quarter: 2013Q1

REPORT INFORMATION
  Report Type: Spontaneous
  Country: BR (occurrence: BR)
  Receive Date: 20130104
  Receipt Date: 20130325
  Transmission Date: 20140127
  Serious: Yes (Other)
  Sender: FDA-Public Use
  Company Number: BR-RANBAXY-2012R5-63780

PATIENT
  Sex: Male

DRUGS (7)
  1. NORTRIPTYLINE [Suspect]
     Indication: DEPRESSION
     Dosage: 50 MG, BID
     Route: 048
  2. ATENOLOL [Concomitant]
     Indication: ARRHYTHMIA
     Dosage: 25 MG, TID
     Route: 065
  3. ATENOLOL [Concomitant]
     Indication: HYPERTENSION
  4. RIVOTRIL [Concomitant]
     Indication: ANXIETY
     Dosage: 2 MG, TID
     Route: 065
  5. DOGMATIL [Concomitant]
     Indication: DEPRESSION
     Dosage: UNK
     Route: 065
  6. OMEPRAZOLE [Concomitant]
     Indication: GASTRITIS
     Dosage: 20 MG, QD
     Route: 065
  7. ARCALION [Concomitant]
     Indication: SEXUAL DYSFUNCTION
     Dosage: UNK
     Route: 065

REACTIONS (4)
  - Arrhythmia [Not Recovered/Not Resolved]
  - Dry mouth [Not Recovered/Not Resolved]
  - Hyperhidrosis [Not Recovered/Not Resolved]
  - Feeling cold [Not Recovered/Not Resolved]
